FAERS Safety Report 21389654 (Version 1)
Quarter: 2022Q3

REPORT INFORMATION
  Report Type: Spontaneous
  Country: FR (occurrence: FR)
  Receive Date: 20220929
  Receipt Date: 20220929
  Transmission Date: 20221026
  Serious: Yes (Life-Threatening)
  Sender: FDA-Public Use
  Company Number: None

PATIENT
  Age: 25 Year
  Sex: Female
  Weight: 52 kg

DRUGS (4)
  1. PAROXETINE HYDROCHLORIDE [Suspect]
     Active Substance: PAROXETINE HYDROCHLORIDE
     Indication: Suicide attempt
     Dosage: 28 TABLETS OF 20 MG , CHLORHYDRATE DE PAROXETINE ANHYDRE , UNIT DOSE : 560 MG , FREQUENCY TIME : 1 T
     Dates: start: 20160314
  2. ZOLPIDEM [Suspect]
     Active Substance: ZOLPIDEM TARTRATE
     Indication: Suicide attempt
     Dosage: 28 TABLETS OF 10 MG , UNIT DOSE  : 280 MG , FREQUENCY TIME : 1 TOTAL
     Dates: start: 20160314
  3. LORMETAZEPAM [Suspect]
     Active Substance: LORMETAZEPAM
     Indication: Suicide attempt
     Dosage: 14 TABLETS OF 8 MG , UNIT DOSE : 112 MG , FREQUENCY TIME : 1 TOTAL
     Dates: start: 20160314
  4. QUETIAPINE FUMARATE [Suspect]
     Active Substance: QUETIAPINE FUMARATE
     Indication: Suicide attempt
     Dosage: 3000 MG , FORM STRENGTH : 50 MG, UNIT DOSE : 60 DF , FREQUENCY TIME : 1 TOTAL
     Dates: start: 20160314

REACTIONS (2)
  - Anticholinergic syndrome [Recovered/Resolved]
  - Poisoning deliberate [Recovered/Resolved]

NARRATIVE: CASE EVENT DATE: 20160314
